FAERS Safety Report 5330164-7 (Version None)
Quarter: 2007Q2

REPORT INFORMATION
  Report Type: 
  Country: None (occurrence: None)
  Receive Date: 20070515
  Receipt Date: 20070501
  Transmission Date: 20071010
  Serious: Yes (Hospitalization)
  Sender: FDA-Public Use
  Company Number: POMP-11040

PATIENT
  Age: 13 Year
  Sex: Male
  Weight: 55.7834 kg

DRUGS (3)
  1. MYOZYME [Suspect]
     Indication: GLYCOGEN STORAGE DISEASE TYPE II
     Dosage: 20 MG/KG Q2WKS IV
     Route: 042
     Dates: start: 20060601
  2. ALPHA-GLUCOSIDASE (HUMAN, RECOMBINANT, CHO CELLS, GENZYME). MFR:  GENZ [Suspect]
     Indication: GLYCOGEN STORAGE DISEASE TYPE II
     Dosage: 20 MG/KG Q2WKS IV
     Route: 042
     Dates: start: 20040213, end: 20060601
  3. ALPHA-GLUCOSIDASE (HUMAN, RECOMBINANT, CHO CELLS, GENZYME). MFR:  GENZ [Suspect]

REACTIONS (8)
  - BLOOD PRESSURE DECREASED [None]
  - CHEST DISCOMFORT [None]
  - FLUSHING [None]
  - HYPERHIDROSIS [None]
  - RESPIRATORY TRACT IRRITATION [None]
  - SPINAL DISORDER [None]
  - SUPRAVENTRICULAR TACHYCARDIA [None]
  - WEIGHT INCREASED [None]
